FAERS Safety Report 6632411-8 (Version None)
Quarter: 2010Q1

REPORT INFORMATION
  Report Type: 
  Country: None (occurrence: None)
  Receive Date: 20100312
  Receipt Date: 20090727
  Transmission Date: 20100710
  Serious: Yes (Hospitalization)
  Sender: FDA-Public Use
  Company Number: 2005BI014404

PATIENT
  Age: 48 Year
  Sex: Female
  Weight: 61 kg

DRUGS (5)
  1. AVONEX [Suspect]
     Indication: MULTIPLE SCLEROSIS
     Route: 030
     Dates: start: 19981201, end: 20040101
  2. AVONEX [Suspect]
     Route: 030
     Dates: start: 20040101, end: 20040101
  3. AVONEX [Suspect]
     Route: 030
     Dates: start: 20040101
  4. TRAZODONE HCL [Concomitant]
     Indication: SLEEP DISORDER
     Dates: start: 19950101
  5. VITAMINS [Concomitant]
     Indication: ROUTINE HEALTH MAINTENANCE
     Dates: start: 20000101

REACTIONS (23)
  - ABASIA [None]
  - BACK PAIN [None]
  - BIPOLAR I DISORDER [None]
  - CONSTIPATION [None]
  - DEPRESSION [None]
  - EYE COMPLICATION ASSOCIATED WITH DEVICE [None]
  - FATIGUE [None]
  - FEAR OF NEEDLES [None]
  - FOOT FRACTURE [None]
  - GAIT DISTURBANCE [None]
  - INCORRECT ROUTE OF DRUG ADMINISTRATION [None]
  - INFLUENZA LIKE ILLNESS [None]
  - INJECTION SITE HAEMORRHAGE [None]
  - INJECTION SITE PAIN [None]
  - MENTAL IMPAIRMENT [None]
  - MULTIPLE SCLEROSIS [None]
  - MULTIPLE SCLEROSIS RELAPSE [None]
  - MUSCLE SPASTICITY [None]
  - OSTEOPENIA [None]
  - OSTEOPOROSIS [None]
  - PAIN [None]
  - PAIN IN EXTREMITY [None]
  - SKELETAL INJURY [None]
